FAERS Safety Report 26193705 (Version 1)
Quarter: 2025Q4

REPORT INFORMATION
  Report Type: Report from Study
  Country: US (occurrence: US)
  Receive Date: 20251224
  Receipt Date: 20251224
  Transmission Date: 20260118
  Serious: Yes (Other)
  Sender: SUPERNUS
  Company Number: US-ADM-ADM202512-005214

PATIENT
  Age: 71 Year
  Sex: Male

DRUGS (2)
  1. GOCOVRI [Suspect]
     Active Substance: AMANTADINE
     Indication: Dyskinesia
     Dosage: TWO CAPSULES (274MG TOTAL) EVERY NIGHT AT BEDTIME.
     Route: 048
     Dates: start: 20251017
  2. GOCOVRI [Suspect]
     Active Substance: AMANTADINE
     Indication: Parkinson^s disease

REACTIONS (1)
  - Loss of consciousness [Not Recovered/Not Resolved]
